FAERS Safety Report 4421055-4 (Version None)
Quarter: 2004Q3

REPORT INFORMATION
  Report Type: 
  Country: None (occurrence: None)
  Receive Date: 20040809
  Receipt Date: 20040729
  Transmission Date: 20050211
  Serious: Yes (Hospitalization)
  Sender: FDA-Public Use
  Company Number: PHNU2004DE02728

PATIENT
  Sex: Female

DRUGS (1)
  1. CAFERGOT [Suspect]
     Indication: MIGRAINE
     Dates: start: 19870101, end: 19900101

REACTIONS (4)
  - ASTHENIA [None]
  - DIFFICULTY IN WALKING [None]
  - DRUG DEPENDENCE [None]
  - PARAESTHESIA [None]
